FAERS Safety Report 5236267-X (Version None)
Quarter: 2007Q1

REPORT INFORMATION
  Report Type: 
  Country: None (occurrence: None)
  Receive Date: 20070212
  Receipt Date: 20070131
  Transmission Date: 20070707
  Serious: Yes (Other)
  Sender: FDA-Public Use
  Company Number: JP-PFIZER INC-2007003407

PATIENT
  Age: 37 Year
  Sex: Male

DRUGS (2)
  1. SULFASALAZINE [Suspect]
     Indication: COLITIS ULCERATIVE
     Route: 048
  2. MESALAZINE [Suspect]
     Indication: COLITIS ULCERATIVE
     Dates: start: 20040101, end: 20061202

REACTIONS (1)
  - BLOOD AMYLASE INCREASED [None]
